FAERS Safety Report 20156517 (Version 1)
Quarter: 2021Q4

REPORT INFORMATION
  Report Type: Spontaneous
  Country: US (occurrence: None)
  Receive Date: 20211207
  Receipt Date: 20211207
  Transmission Date: 20220303
  Serious: Yes (Hospitalization)
  Sender: FDA-Public Use
  Company Number: None

PATIENT
  Age: 70 Year
  Sex: Male
  Weight: 70.6 kg

DRUGS (1)
  1. ABEMACICLIB [Suspect]
     Active Substance: ABEMACICLIB
     Indication: Bladder cancer
     Dosage: FREQUENCY : TWICE A DAY;?
     Route: 048
     Dates: start: 20211102, end: 20211123

REACTIONS (6)
  - Asthenia [None]
  - Hypotension [None]
  - Acute kidney injury [None]
  - Hyponatraemia [None]
  - Rectal haemorrhage [None]
  - Urinary tract infection [None]

NARRATIVE: CASE EVENT DATE: 20211204
